FAERS Safety Report 15166169 (Version 7)
Quarter: 2024Q1

REPORT INFORMATION
  Report Type: Spontaneous
  Country: DE (occurrence: DE)
  Receive Date: 20180719
  Receipt Date: 20240226
  Transmission Date: 20240410
  Serious: Yes (Death, Disabling, Congenital Anomaly, Other)
  Sender: FDA-Public Use
  Company Number: DE-NODEN PHARMA DAC-NOD-2018-000056

PATIENT

DRUGS (21)
  1. NICOTINE [Suspect]
     Active Substance: NICOTINE
     Indication: Foetal exposure during pregnancy
     Dosage: UNK
     Route: 064
  2. RAMIPRIL [Suspect]
     Active Substance: RAMIPRIL
     Indication: Foetal exposure during pregnancy
     Dosage: 20 MG, UNK,  FROM GESTATIONAL WEEK 0-113+6
     Route: 064
     Dates: start: 20111214, end: 20120320
  3. ASPIRIN [Suspect]
     Active Substance: ASPIRIN
     Indication: Foetal exposure during pregnancy
     Dosage: 100 MG, (FROM GESTATIONAL WEEK 0-14   )
     Route: 064
     Dates: start: 20111214, end: 20120320
  4. PREDNISOLONE [Suspect]
     Active Substance: PREDNISOLONE
     Indication: Foetal exposure during pregnancy
     Dosage: 10 MG, (FROM GESTATIONAL WEEK 0-14)
     Route: 064
     Dates: start: 20111214, end: 20120320
  5. TACROLIMUS [Suspect]
     Active Substance: TACROLIMUS
     Indication: Foetal exposure during pregnancy
     Dosage: 6 MG, QD, 9FROM GESTATIONAL WEEK 0-14   )FROM GESTATIONAL WEEK 0-14)
     Route: 064
     Dates: start: 20111214, end: 20120320
  6. PANTOPRAZOLE [Suspect]
     Active Substance: PANTOPRAZOLE
     Indication: Foetal exposure during pregnancy
     Dosage: 40 MG, QD, (0-13.6 GESTATIONAL WEEK )
     Route: 064
     Dates: start: 20111214, end: 20120320
  7. TORSEMIDE [Suspect]
     Active Substance: TORSEMIDE
     Indication: Foetal exposure during pregnancy
     Dosage: 100 MG, QD, (FROM GESTATIONAL WEEK 0-14)
     Route: 064
     Dates: start: 20111214, end: 20120320
  8. ALBUTEROL [Suspect]
     Active Substance: ALBUTEROL
     Indication: Foetal exposure during pregnancy
     Dosage: UNK, QD, (FROM GESTATIONAL WEEK 0-14))
     Route: 055
  9. ALISKIREN [Suspect]
     Active Substance: ALISKIREN
     Indication: Foetal exposure during pregnancy
     Dosage: 300 MG, QD, (0-4.6 GESTATIONAL WEEK)
     Route: 064
     Dates: start: 20111214, end: 20120117
  10. SIMVASTATIN [Suspect]
     Active Substance: SIMVASTATIN
     Indication: Foetal exposure during pregnancy
     Dosage: UNK, (FROM GESTATIONAL WEEK 0-14   )
     Route: 064
     Dates: start: 20111214, end: 20120320
  11. METAMIZOLE SODIUM [Suspect]
     Active Substance: METAMIZOLE SODIUM
     Indication: Foetal exposure during pregnancy
     Dosage: UNK, (FROM GESTATIONAL WEEK 0-14  )
     Route: 064
  12. EZETIMIBE [Suspect]
     Active Substance: EZETIMIBE
     Indication: Foetal exposure during pregnancy
     Dosage: UNKNOWN
     Route: 064
  13. HYDROXYCHLOROQUINE [Suspect]
     Active Substance: HYDROXYCHLOROQUINE
     Indication: Foetal exposure during pregnancy
     Dosage: 400 MG, (FROM GESTATIONAL WEEK 0-14 )
     Route: 064
     Dates: start: 20111214, end: 20120320
  14. ENOXAPARIN SODIUM [Suspect]
     Active Substance: ENOXAPARIN SODIUM
     Indication: Pulmonary embolism
     Dosage: 200 MG, QD
     Route: 064
     Dates: start: 20111214, end: 20120320
  15. XARELTO [Suspect]
     Active Substance: RIVAROXABAN
     Indication: Foetal exposure during pregnancy
     Dosage: UNK, (FROM GESTATIONAL WEEK 0-5)
     Route: 064
  16. RITUXIMAB [Suspect]
     Active Substance: RITUXIMAB
     Indication: Systemic lupus erythematosus
     Dosage: UNK, (LAST TIME IN DECEMBER 2011: PRE OR PERICONCEPTIONAL)
     Route: 064
     Dates: end: 201112
  17. HEPARIN [Suspect]
     Active Substance: HEPARIN SODIUM
     Indication: Foetal exposure during pregnancy
     Dosage: UNK
     Route: 064
  18. METAMIZOLE [Suspect]
     Active Substance: METAMIZOLE
     Indication: Foetal exposure during pregnancy
     Dosage: UNK, TRIMESTER: FIRST; PROBABLY ONLY IN HOSPITAL IN WEEK 5
     Route: 064
  19. CYTOTEC [Concomitant]
     Active Substance: MISOPROSTOL
     Indication: Abortion induced
     Dosage: UNK, 13.6 GESTATIONAL WEEK
     Route: 048
  20. CYCLOPHOSPHAMIDE [Concomitant]
     Active Substance: CYCLOPHOSPHAMIDE
     Indication: Systemic lupus erythematosus
     Dosage: UNK, 3000 [MG CUMULATIVE]; PRECONCEPTIONAL
     Route: 064
     Dates: start: 201104, end: 201108
  21. MIFEPRISTONE [Concomitant]
     Active Substance: MIFEPRISTONE
     Indication: Abortion induced
     Dosage: UNK, 13.6 GESTATIONAL WEEK
     Route: 048
     Dates: start: 20120320, end: 20120320

REACTIONS (10)
  - Truncus arteriosus persistent [Fatal]
  - Heart disease congenital [Fatal]
  - Cardiac septal defect [Fatal]
  - Congenital cardiovascular anomaly [Fatal]
  - Ventricular septal defect [Fatal]
  - Foetal exposure during pregnancy [Fatal]
  - Death [Fatal]
  - Abortion induced [Fatal]
  - Low birth weight baby [Unknown]
  - Premature baby [Unknown]
